FAERS Safety Report 18297937 (Version 1)
Quarter: 2020Q3

REPORT INFORMATION
  Report Type: Spontaneous
  Country: US (occurrence: US)
  Receive Date: 20200922
  Receipt Date: 20200922
  Transmission Date: 20201103
  Serious: Yes (Death, Hospitalization, Other)
  Sender: FDA-Public Use
  Company Number: US-JNJFOC-A-NJ2020-201521

PATIENT
  Age: 54 Year
  Sex: Female
  Weight: 92.52 kg

DRUGS (8)
  1. OPSUMIT [Suspect]
     Active Substance: MACITENTAN
     Route: 065
  2. OXYGEN. [Concomitant]
     Active Substance: OXYGEN
  3. OPSUMIT [Suspect]
     Active Substance: MACITENTAN
     Indication: PULMONARY ARTERIAL HYPERTENSION
     Dosage: 10 MG
     Route: 048
     Dates: start: 202001
  4. VELETRI [Suspect]
     Active Substance: EPOPROSTENOL
     Indication: PULMONARY ARTERIAL HYPERTENSION
     Dosage: 18 NG/KG, PER MIN
     Route: 042
     Dates: start: 202001
  5. VELETRI [Suspect]
     Active Substance: EPOPROSTENOL
     Dosage: UNK
     Route: 042
     Dates: start: 202001
  6. VELETRI [Suspect]
     Active Substance: EPOPROSTENOL
     Dosage: 19 NG/KG, PER MIN
     Route: 042
  7. VELETRI [Suspect]
     Active Substance: EPOPROSTENOL
     Dosage: 22 NG/KG, PER MIN
     Route: 042
  8. ADEMPAS [Concomitant]
     Active Substance: RIOCIGUAT

REACTIONS (40)
  - Weight decreased [Unknown]
  - Hypotension [Unknown]
  - Red blood cell count decreased [Recovered/Resolved]
  - Somnolence [Unknown]
  - Therapy non-responder [Unknown]
  - Hypoaesthesia [Unknown]
  - Blood magnesium decreased [Unknown]
  - Pain [Unknown]
  - Dehydration [Unknown]
  - Haematocrit decreased [Recovered/Resolved]
  - Constipation [Unknown]
  - Localised oedema [Unknown]
  - Packed red blood cell transfusion [Unknown]
  - Peripheral swelling [Unknown]
  - Paracentesis [Unknown]
  - Nausea [Unknown]
  - Swelling [Unknown]
  - Catheter site scab [Unknown]
  - Periorbital swelling [Unknown]
  - Disease progression [Fatal]
  - Blood potassium decreased [Unknown]
  - Abdominal distension [Unknown]
  - Pulmonary embolism [Unknown]
  - Adverse event [Recovering/Resolving]
  - Bone pain [Unknown]
  - Pulmonary hypertension [Fatal]
  - Myalgia [Unknown]
  - Asthenia [Unknown]
  - Hospice care [Unknown]
  - Abdominal pain [Unknown]
  - Diarrhoea [Unknown]
  - Haemoglobin decreased [Recovered/Resolved]
  - Fatigue [Unknown]
  - Catheter site irritation [Unknown]
  - Dyspnoea exertional [Unknown]
  - Haematemesis [Unknown]
  - Headache [Unknown]
  - Chest pain [Unknown]
  - Dyspnoea [Unknown]
  - Decreased appetite [Recovering/Resolving]

NARRATIVE: CASE EVENT DATE: 202001
